FAERS Safety Report 10101615 (Version 1)
Quarter: 2014Q2

REPORT INFORMATION
  Report Type: Spontaneous
  Country: FR (occurrence: FR)
  Receive Date: 20140424
  Receipt Date: 20140424
  Transmission Date: 20141212
  Serious: Yes (Hospitalization, Disabling)
  Sender: FDA-Public Use
  Company Number: FR-JNJFOC-20140414678

PATIENT
  Age: 47 Year
  Sex: Male

DRUGS (7)
  1. SIMPONI [Suspect]
     Indication: ANKYLOSING SPONDYLITIS
     Route: 058
     Dates: start: 20131003
  2. CORTANCYL [Concomitant]
     Route: 065
     Dates: start: 201308
  3. METHOTREXATE [Concomitant]
     Route: 065
     Dates: start: 2007
  4. DAFALGAN [Concomitant]
     Route: 065
  5. SPECIAFOLDINE [Concomitant]
     Route: 065
  6. OMEPRAZOLE [Concomitant]
     Route: 065
  7. LAMALINE [Concomitant]
     Route: 065

REACTIONS (3)
  - Myalgia [Not Recovered/Not Resolved]
  - Paraesthesia [Unknown]
  - Muscle disorder [Unknown]
